FAERS Safety Report 4369294-5 (Version None)
Quarter: 2004Q2

REPORT INFORMATION
  Report Type: 
  Country: None (occurrence: None)
  Receive Date: 20040602
  Receipt Date: 20040521
  Transmission Date: 20050107
  Serious: Yes (Hospitalization)
  Sender: FDA-Public Use
  Company Number: PANC00304001145

PATIENT
  Age: 58 Year
  Sex: Male
  Weight: 39 kg

DRUGS (17)
  1. CREON [Suspect]
     Indication: MALIGNANT NEOPLASM OF AMPULLA OF VATER
     Dosage: 3 G DAILY PO
     Route: 048
     Dates: start: 19970711, end: 19980709
  2. CREON [Suspect]
     Indication: PANCREATIC CARCINOMA
     Dosage: 3 G DAILY PO
     Route: 048
     Dates: start: 19970711, end: 19980709
  3. TOUGHMAC E [Concomitant]
  4. MAALOX (LOPERAMIDE HYDROCHLORIDE) [Concomitant]
  5. HUMULIN N [Concomitant]
  6. HUMULIN R [Concomitant]
  7. LASIX [Concomitant]
  8. LOPERAMIDE HCL [Concomitant]
  9. CEFOTIAM HYDROCHLORIDE [Concomitant]
  10. ADONA (CARBAZOCHROME SODIUM SULFONATE) [Concomitant]
  11. TRANSAMIN (TRANEXAMIC ACID) [Concomitant]
  12. SOLITA-T NO.3 [Concomitant]
  13. LACTEC [Concomitant]
  14. LOXONIN (LOXOPROFEN SODIUM) [Concomitant]
  15. DASEN (SERRAPEPTASE) [Concomitant]
  16. PANSPORIN T (CEFOTIAM HEXETIL HYDROCHLORIDE) [Concomitant]
  17. CEFZON (CEFDINIR) [Concomitant]

REACTIONS (8)
  - ANAEMIA [None]
  - ASPARTATE AMINOTRANSFERASE INCREASED [None]
  - BLOOD AMYLASE DECREASED [None]
  - BLOOD LACTATE DEHYDROGENASE DECREASED [None]
  - GAMMA-GLUTAMYLTRANSFERASE INCREASED [None]
  - HYPOTENSION [None]
  - PANCREATIC CARCINOMA RECURRENT [None]
  - WHITE BLOOD CELL COUNT INCREASED [None]
